FAERS Safety Report 5161990-5 (Version None)
Quarter: 2006Q4

REPORT INFORMATION
  Report Type: 
  Country: None (occurrence: None)
  Receive Date: 20061130
  Receipt Date: 20061120
  Transmission Date: 20070319
  Serious: Yes (Life-Threatening, Hospitalization)
  Sender: FDA-Public Use
  Company Number: FR-BRISTOL-MYERS SQUIBB COMPANY-13594189

PATIENT
  Age: 8 Year
  Sex: Male

DRUGS (9)
  1. ENDOXAN [Suspect]
     Route: 042
     Dates: start: 20060509
  2. CELEBREX [Suspect]
     Route: 048
     Dates: start: 20060509, end: 20061005
  3. ETOPOSIDE [Concomitant]
     Route: 042
     Dates: start: 20060509
  4. PHENYTOIN SODIUM CAP [Concomitant]
     Dates: start: 20060428
  5. TEGRETOL [Concomitant]
     Dates: start: 20060428
  6. RIVOTRIL [Concomitant]
     Dates: start: 20060428
  7. OMEPRAZOLE [Concomitant]
     Dates: start: 20050101
  8. SOLUPRED [Concomitant]
     Dates: start: 20050101
  9. ZOFRAN [Concomitant]

REACTIONS (5)
  - EPILEPSY [None]
  - HAEMORRHAGE INTRACRANIAL [None]
  - INTRACRANIAL PRESSURE INCREASED [None]
  - SUBDURAL HAEMATOMA [None]
  - THROMBOCYTOPENIA [None]
